FAERS Safety Report 7805941-0 (Version None)
Quarter: 2011Q4

REPORT INFORMATION
  Report Type: 
  Country: None (occurrence: None)
  Receive Date: 20111007
  Receipt Date: 20111007
  Transmission Date: 20120403
  Serious: Yes (Hospitalization)
  Sender: FDA-Public Use
  Company Number: None

PATIENT
  Age: 87 Year
  Sex: Male
  Weight: 67 kg

DRUGS (2)
  1. DIGOXIN [Suspect]
     Indication: ATRIAL FIBRILLATION
     Dosage: 0.125 MG EVERY DAY PO
     Route: 048
     Dates: start: 20110630, end: 20111004
  2. CARVEDILOL [Suspect]
     Indication: ATRIAL FIBRILLATION
     Dosage: 3.125 MG BID PO
     Route: 048
     Dates: start: 20110630, end: 20111004

REACTIONS (1)
  - BRADYCARDIA [None]
